FAERS Safety Report 22168417 (Version 1)
Quarter: 2023Q2

REPORT INFORMATION
  Report Type: Spontaneous
  Country: CN (occurrence: CN)
  Receive Date: 20230403
  Receipt Date: 20230403
  Transmission Date: 20230722
  Serious: Yes (Other)
  Sender: FDA-Public Use
  Company Number: CN-BAYER-2023A043454

PATIENT
  Age: 70 Year
  Sex: Male
  Weight: 69 kg

DRUGS (2)
  1. XARELTO [Suspect]
     Active Substance: RIVAROXABAN
     Indication: Venous thrombosis limb
     Dosage: 10 MG, QD
     Route: 048
     Dates: start: 20230102, end: 20230105
  2. RO-0622 [Suspect]
     Active Substance: RO-0622
     Indication: SARS-CoV-2 test positive
     Dosage: 5 MG, QD
     Route: 048
     Dates: start: 20221227, end: 20230106

REACTIONS (5)
  - International normalised ratio increased [Recovered/Resolved]
  - Prescribed underdose [Unknown]
  - Underdose [Unknown]
  - Inappropriate schedule of product administration [Unknown]
  - Product prescribing issue [Unknown]

NARRATIVE: CASE EVENT DATE: 20230102
